FAERS Safety Report 6895759-8 (Version None)
Quarter: 2010Q3

REPORT INFORMATION
  Report Type: 
  Country: None (occurrence: None)
  Receive Date: 20100802
  Receipt Date: 20100723
  Transmission Date: 20110219
  Serious: Yes (Other)
  Sender: FDA-Public Use
  Company Number: US-MPIJNJ-2010-04078

PATIENT
  Age: 49 Year
  Sex: Male

DRUGS (11)
  1. VELCADE [Suspect]
     Indication: MULTIPLE MYELOMA
     Dosage: 1.0 MG/M2, CYCLIC
     Dates: start: 20070101, end: 20080101
  2. VELCADE [Suspect]
     Dosage: 1.3 MG/M2, CYCLIC
     Dates: start: 20070101, end: 20070101
  3. DEXAMETHASONE [Suspect]
     Indication: MULTIPLE MYELOMA
     Dosage: 40 MG, CYCLIC
     Dates: start: 20070101, end: 20070101
  4. DEXAMETHASONE [Suspect]
     Dosage: 20 MG, CYCLIC
     Dates: start: 20080101, end: 20080101
  5. THALIDOMIDE [Suspect]
     Indication: MULTIPLE MYELOMA
     Dosage: 200 MG, CYCLIC
     Dates: start: 20070101, end: 20070101
  6. THALIDOMIDE [Suspect]
     Dosage: 100 MG, CYCLIC
     Dates: start: 20080101, end: 20080101
  7. DOXORUBICIN HCL [Suspect]
     Indication: MULTIPLE MYELOMA
     Dosage: 10 MG/M2, CYCLIC
     Route: 042
     Dates: start: 20070101, end: 20080101
  8. CYCLOPHOSPHAMIDE [Suspect]
     Indication: MULTIPLE MYELOMA
     Dosage: 400 MG/M2, CYCLIC
     Dates: start: 20070101, end: 20070101
  9. CYCLOPHOSPHAMIDE [Suspect]
     Dosage: 200 MG/M2, CYCLIC
     Dates: start: 20080101, end: 20080101
  10. ETOPOSIDE [Suspect]
     Indication: MULTIPLE MYELOMA
     Dosage: 40 MG/M2, CYCLIC
     Dates: start: 20070101, end: 20080101
  11. MELPHALAN [Suspect]
     Indication: MULTIPLE MYELOMA
     Dosage: 80 MG/M2, UNK
     Dates: start: 20070101, end: 20080101

REACTIONS (11)
  - ACUTE GRAFT VERSUS HOST DISEASE IN INTESTINE [None]
  - COLITIS [None]
  - CYTOMEGALOVIRUS GASTROENTERITIS [None]
  - DUODENITIS [None]
  - ENTEROCOLITIS [None]
  - ERYTHEMA [None]
  - GASTRITIS [None]
  - GASTRITIS EROSIVE [None]
  - GASTROINTESTINAL DISORDER [None]
  - GRAFT VERSUS HOST DISEASE [None]
  - VIRAL INFECTION [None]
